FAERS Safety Report 13555963 (Version 1)
Quarter: 2017Q2

REPORT INFORMATION
  Report Type: Spontaneous
  Country: US (occurrence: US)
  Receive Date: 20170517
  Receipt Date: 20170517
  Transmission Date: 20170830
  Serious: Yes (Hospitalization)
  Sender: FDA-Public Use
  Company Number: US-SA-2016SA213253

PATIENT
  Sex: Female

DRUGS (15)
  1. ASPIR-81 [Concomitant]
     Active Substance: ASPIRIN
     Dosage: STRENGTH: 81 MG EC TABLET
     Route: 048
  2. AMBIEN [Concomitant]
     Active Substance: ZOLPIDEM TARTRATE
     Dosage: STRENGTH: 10 MG?DOSAGE: 1 TABLET BY MOUTH EVERY BEDTIME AS NEEDED.
     Route: 048
  3. VITAMIN C [Concomitant]
     Active Substance: ASCORBIC ACID
     Dosage: STRENGTH: 500 MG
     Route: 048
  4. CITRACAL REGULAR ORAL [Concomitant]
     Route: 048
  5. ZOCOR [Concomitant]
     Active Substance: SIMVASTATIN
     Dosage: STRENGTH:20 MG
     Route: 048
  6. TOUJEO [Suspect]
     Active Substance: INSULIN GLARGINE
     Dosage: DOSE:40 UNIT(S)
     Route: 065
  7. COENZYME Q10 [Concomitant]
     Active Substance: UBIDECARENONE
     Dosage: STRENGTH: 10 MG
     Route: 048
  8. FISH OIL [Concomitant]
     Active Substance: FISH OIL
     Dosage: STRENGTH: 1,000 MG
     Route: 048
  9. SOLOSTAR [Concomitant]
     Active Substance: DEVICE
  10. NORVASC [Concomitant]
     Active Substance: AMLODIPINE BESYLATE
     Dosage: STRENGTH: 5 MG
     Route: 048
  11. CELEBREX [Concomitant]
     Active Substance: CELECOXIB
     Dosage: DOSAGE: 200 MG BY MOUTH DAILY AS NEEDED. ?STRENGTH: 200 MG
     Route: 048
  12. TYLENOL [Concomitant]
     Active Substance: ACETAMINOPHEN
     Dosage: STRENGTH: 325 MG?DOSAGE: TAKE 650 MG BY MOUTH AS NEEDED. DO NOT EXCEED 3,250 MG IN A 24 HOUR PERIOD.
     Route: 048
  13. PLAVIX [Concomitant]
     Active Substance: CLOPIDOGREL BISULFATE
     Dosage: STRENGTH: 75 MG
     Route: 048
  14. LUTEIN [Concomitant]
     Active Substance: LUTEIN
     Dosage: STRENGTH: 10 MG
     Route: 048
  15. ALEVE [Concomitant]
     Active Substance: NAPROXEN SODIUM
     Dosage: STRENGTH: 220 MG
     Route: 048

REACTIONS (5)
  - Blood glucose increased [Unknown]
  - Cataract [Unknown]
  - Insomnia [Unknown]
  - Essential hypertension [Unknown]
  - Back pain [Unknown]
